FAERS Safety Report 8563986-X (Version None)
Quarter: 2012Q3

REPORT INFORMATION
  Report Type: 
  Country: None (occurrence: None)
  Receive Date: 20120803
  Receipt Date: 20120731
  Transmission Date: 20120928
  Serious: Yes (Hospitalization)
  Sender: FDA-Public Use
  Company Number: PHHO2012DE011229

PATIENT
  Age: 52 Year
  Sex: Female
  Weight: 160 kg

DRUGS (3)
  1. PREDNISOLONE [Suspect]
     Dosage: 20 MG, QD
     Route: 048
     Dates: start: 20120618
  2. MYCOPHENOLIC ACID [Suspect]
     Indication: PANCREAS TRANSPLANT
     Dosage: 720 MG, BID
     Dates: start: 20120619
  3. PROGRAF [Suspect]
     Indication: PANCREAS TRANSPLANT
     Dosage: 3.5 MG, BID
     Dates: start: 20120619

REACTIONS (2)
  - RENAL FAILURE ACUTE [None]
  - PANCREAS TRANSPLANT REJECTION [None]
